FAERS Safety Report 8597715-0 (Version None)
Quarter: 2012Q3

REPORT INFORMATION
  Report Type: 
  Country: None (occurrence: None)
  Receive Date: 20120816
  Receipt Date: 20120810
  Transmission Date: 20120928
  Serious: Yes (Hospitalization)
  Sender: FDA-Public Use
  Company Number: PHHY2012JP061332

PATIENT
  Sex: Female
  Weight: 42 kg

DRUGS (8)
  1. YOKUKAN-SAN [Suspect]
     Indication: HEPATITIS B
     Dosage: 7.5 G, UNK
     Route: 048
     Dates: end: 20120713
  2. EXELON [Suspect]
     Indication: DEMENTIA WITH LEWY BODIES
     Dosage: 4.5 MG, DAILY
     Route: 062
     Dates: start: 20120101, end: 20120228
  3. GOKUMISIN [Concomitant]
     Indication: HEPATITIS B
     Dosage: 150 MG, UNK
     Route: 048
     Dates: end: 20120713
  4. NORVASC [Concomitant]
     Indication: HYPERTENSION
     Dosage: 2.5 MG, UNK
     Route: 048
     Dates: end: 20120713
  5. EXELON [Suspect]
     Dosage: 9 MG, DAILY
     Route: 062
     Dates: start: 20120301, end: 20120614
  6. EXELON [Suspect]
     Dosage: 9 MG, DAILY
     Route: 062
     Dates: start: 20120713
  7. NOXTAL [Suspect]
     Indication: INSOMNIA
     Dosage: 0.25 MG, UNK
     Route: 048
     Dates: end: 20120713
  8. EPL [Concomitant]
     Indication: HYPERLIPIDAEMIA
     Dosage: 250 MG, UNK
     Route: 048
     Dates: end: 20120713

REACTIONS (6)
  - DEHYDRATION [None]
  - PNEUMONIA [None]
  - ALTERED STATE OF CONSCIOUSNESS [None]
  - HYPERAMMONAEMIA [None]
  - HEPATIC ENCEPHALOPATHY [None]
  - DRUG ADMINISTRATION ERROR [None]
